FAERS Safety Report 16161159 (Version 1)
Quarter: 2019Q2

REPORT INFORMATION
  Report Type: Spontaneous
  Country: FR (occurrence: FR)
  Receive Date: 20190405
  Receipt Date: 20190405
  Transmission Date: 20190711
  Serious: Yes (Hospitalization)
  Sender: FDA-Public Use
  Company Number: FR-TEVA-2019-FR-1035392

PATIENT
  Age: 13 Year
  Sex: Female
  Weight: 41.3 kg

DRUGS (6)
  1. LANTUS [Concomitant]
     Active Substance: INSULIN GLARGINE
     Indication: DIABETES MELLITUS
     Route: 058
     Dates: end: 201902
  2. ANTADYS 100 MG, COMPRIME PELLICULE [Suspect]
     Active Substance: FLURBIPROFEN
     Indication: ENDOMETRIOSIS
     Route: 048
     Dates: start: 20190205, end: 20190209
  3. CODEINE [Concomitant]
     Active Substance: CODEINE
     Indication: ENDOMETRIOSIS
     Route: 048
     Dates: start: 20190205
  4. HUMALOG [Concomitant]
     Active Substance: INSULIN LISPRO
     Indication: DIABETES MELLITUS
     Route: 058
     Dates: end: 201902
  5. PARACETAMOL [Concomitant]
     Active Substance: ACETAMINOPHEN
     Indication: ENDOMETRIOSIS
     Route: 048
     Dates: start: 20190205
  6. SEASONIQUE [Concomitant]
     Active Substance: ETHINYL ESTRADIOL\LEVONORGESTREL
     Indication: ENDOMETRIOSIS
     Route: 048
     Dates: start: 20190202

REACTIONS (1)
  - Acute kidney injury [Recovering/Resolving]

NARRATIVE: CASE EVENT DATE: 20190209
